FAERS Safety Report 6728158-X (Version None)
Quarter: 2010Q2

REPORT INFORMATION
  Report Type: 
  Country: None (occurrence: None)
  Receive Date: 20100517
  Receipt Date: 20100506
  Transmission Date: 20101027
  Serious: Yes (Life-Threatening, Hospitalization)
  Sender: FDA-Public Use
  Company Number: A0858554A

PATIENT
  Sex: Male

DRUGS (6)
  1. CARVEDILOL [Suspect]
     Dosage: 25MG TWICE PER DAY
     Route: 048
     Dates: start: 20090122, end: 20090124
  2. LISINOPRIL [Concomitant]
  3. ASPIRIN [Concomitant]
  4. HYDROCODONE [Concomitant]
  5. DIAZEPAM [Concomitant]
  6. MULTIPLE MEDICATIONS [Concomitant]

REACTIONS (2)
  - ADVERSE EVENT [None]
  - FEELING ABNORMAL [None]
